FAERS Safety Report 5454467-0 (Version None)
Quarter: 2007Q3

REPORT INFORMATION
  Report Type: 
  Country: None (occurrence: None)
  Receive Date: 20070917
  Receipt Date: 20070912
  Transmission Date: 20080115
  Serious: Yes (Life-Threatening, Hospitalization)
  Sender: FDA-Public Use
  Company Number: PHBS2007JP09065

PATIENT
  Age: 86 Year
  Sex: Male
  Weight: 58 kg

DRUGS (38)
  1. VOLTAREN [Suspect]
     Indication: BACK PAIN
     Dosage: 25 MG/DAY
     Route: 054
     Dates: end: 20070423
  2. VOLTAREN [Suspect]
     Dosage: 50 MG/DAY
     Route: 054
     Dates: start: 20070526, end: 20070529
  3. HANP [Suspect]
     Indication: CARDIAC FAILURE CHRONIC
     Dosage: UNK, UNK
     Route: 065
     Dates: start: 20061002, end: 20061010
  4. HANP [Suspect]
     Dates: start: 20070323, end: 20070406
  5. HANP [Suspect]
     Dates: start: 20070417, end: 20070501
  6. HANP [Suspect]
     Dates: start: 20070526, end: 20070529
  7. ALLOPURINOL [Concomitant]
     Indication: HYPERURICAEMIA
     Dosage: 200 MG, UNK
     Route: 065
  8. HEPARIN [Suspect]
     Indication: CARDIAC FAILURE CHRONIC
     Dosage: 1000 IU/DAY
     Dates: start: 20061002, end: 20061010
  9. HEPARIN [Suspect]
     Dosage: 3000 IU/DAY
     Dates: start: 20070313, end: 20070406
  10. HEPARIN [Suspect]
     Dosage: 3000 IU/DAY
     Dates: start: 20070417, end: 20070501
  11. HEPARIN [Suspect]
     Dosage: 3000 IU/DAY
     Dates: start: 20070526, end: 20070529
  12. SLOW-K [Concomitant]
     Indication: HYPOKALAEMIA
     Dosage: 1 DF, UNK
     Route: 048
     Dates: start: 20060930, end: 20061013
  13. GASMOTIN [Concomitant]
     Dosage: 15 MG, UNK
     Route: 048
  14. BISOLVON [Concomitant]
     Indication: ASTHMA
     Dosage: 3 DF, UNK
     Route: 048
  15. RABEPRAZOLE SODIUM [Concomitant]
     Indication: OBSTRUCTION GASTRIC
     Dosage: 10 MG, UNK
     Route: 048
  16. LASIX [Concomitant]
     Indication: CARDIAC FAILURE CHRONIC
     Dosage: 80 MG, UNK
     Route: 048
  17. LASIX [Concomitant]
     Dosage: 40 MG, UNK
     Route: 048
  18. LASIX [Concomitant]
     Dosage: 60 MG, UNK
     Route: 048
  19. LASIX [Concomitant]
     Dosage: 40 MG, UNK
     Route: 048
  20. ALDACTONE [Concomitant]
     Indication: CARDIAC FAILURE CHRONIC
     Dosage: 25 MG, UNK
     Route: 048
     Dates: start: 20061005
  21. ASPIRIN [Concomitant]
     Indication: CARDIAC FAILURE CHRONIC
     Dosage: 100 MG, UNK
     Route: 048
     Dates: end: 20061014
  22. LANIRAPID [Concomitant]
     Indication: CARDIAC FAILURE CHRONIC
     Dosage: 0.05 MG, UNK
     Route: 048
  23. TAMSULOSIN HCL [Concomitant]
     Indication: BENIGN PROSTATIC HYPERPLASIA
     Dosage: 0.2 MG, UNK
     Route: 048
  24. CANDESARTAN CILEXETIL [Concomitant]
     Indication: HYPERTENSION
     Dosage: 8 MG, UNK
     Route: 048
  25. AZOSEMIDE [Concomitant]
     Indication: CARDIAC FAILURE CHRONIC
     Dosage: 60 MG, UNK
     Route: 048
  26. FERRUM [Concomitant]
     Indication: IRON DEFICIENCY ANAEMIA
     Dosage: 1 DF, UNK
     Route: 048
  27. ESTAZOLAM [Concomitant]
     Indication: INSOMNIA
     Dosage: 2 MG, UNK
     Route: 048
  28. RONFLEMAN [Concomitant]
     Indication: INSOMNIA
     Dosage: 0.25 MG, UNK
     Route: 048
  29. CYTOTEC [Concomitant]
     Indication: GASTRIC DISORDER
     Dosage: 3 DF, UNK
     Route: 048
     Dates: start: 20061014
  30. ALLOID [Concomitant]
     Indication: OBSTRUCTION GASTRIC
     Dosage: 160 ML, UNK
     Route: 048
     Dates: start: 20061014
  31. TOLPERISONE HYDROCHLORIDE [Concomitant]
     Indication: OBSTRUCTION GASTRIC
     Dosage: 1.5 G, UNK
     Route: 048
     Dates: start: 20061121
  32. NITROGLYCERIN [Concomitant]
     Indication: MYOCARDIAL INFARCTION
     Dosage: 1 DF, UNK
  33. TULOBUTEROL [Concomitant]
     Indication: ASTHMA
     Dosage: 1 DF, UNK
  34. THROMBIN LOCAL SOLUTION [Concomitant]
     Indication: OBSTRUCTION GASTRIC
     Dosage: 15000 DF, UNK
     Route: 048
     Dates: start: 20061014, end: 20061016
  35. LAC B [Concomitant]
     Indication: DIARRHOEA
     Dosage: 3 G, UNK
     Route: 048
     Dates: start: 20061018, end: 20061025
  36. FERROMIA [Concomitant]
     Indication: IRON DEFICIENCY ANAEMIA
     Dosage: 2 DF, UNK
     Route: 048
     Dates: start: 20070302, end: 20070308
  37. NAUZELIN [Concomitant]
     Indication: DIARRHOEA
     Dosage: 3 DF, UNK
     Route: 048
     Dates: start: 20070302, end: 20070304
  38. PHELLOBERIN A [Concomitant]
     Indication: DIARRHOEA
     Dosage: 3 DF, UNK
     Route: 048
     Dates: start: 20070302, end: 20070304

REACTIONS (9)
  - CARDIAC FAILURE [None]
  - HAEMATOCRIT DECREASED [None]
  - HAEMOGLOBIN DECREASED [None]
  - INJECTION SITE HAEMATOMA [None]
  - LEUKOPENIA [None]
  - MYELODYSPLASTIC SYNDROME [None]
  - PANCYTOPENIA [None]
  - RED BLOOD CELL COUNT DECREASED [None]
  - THROMBOCYTOPENIA [None]
